FAERS Safety Report 25205101 (Version 5)
Quarter: 2025Q2

REPORT INFORMATION
  Report Type: Spontaneous
  Country: US (occurrence: US)
  Receive Date: 20250416
  Receipt Date: 20250518
  Transmission Date: 20250717
  Serious: Yes (Other)
  Sender: BAUSCH AND LOMB
  Company Number: US-BAUSCHBL-2025BNL006442

PATIENT
  Age: 56 Year
  Sex: Male
  Weight: 95.3 kg

DRUGS (2)
  1. WATER [Suspect]
     Active Substance: WATER
     Indication: Routine health maintenance
     Route: 047
     Dates: start: 20250302, end: 20250302
  2. WATER [Suspect]
     Active Substance: WATER
     Route: 047
     Dates: start: 20250302, end: 20250302

REACTIONS (9)
  - Exophthalmos [Recovered/Resolved]
  - Blood pressure increased [Recovered/Resolved]
  - Eye pruritus [Recovered/Resolved]
  - Eyelid margin crusting [Recovered/Resolved]
  - Eye swelling [Recovered/Resolved]
  - Eye discharge [Recovered/Resolved]
  - Eye irritation [Unknown]
  - Ocular hyperaemia [Recovered/Resolved]
  - Product quality issue [Unknown]

NARRATIVE: CASE EVENT DATE: 20250302
